FAERS Safety Report 21256064 (Version 3)
Quarter: 2022Q3

REPORT INFORMATION
  Report Type: Spontaneous
  Country: US (occurrence: US)
  Receive Date: 20220825
  Receipt Date: 20220929
  Transmission Date: 20221027
  Serious: Yes (Other)
  Sender: FDA-Public Use
  Company Number: US-009507513-2208USA007979

PATIENT
  Age: 79 Year
  Sex: Male

DRUGS (12)
  1. KEYTRUDA [Suspect]
     Active Substance: PEMBROLIZUMAB
     Indication: Gastric cancer
     Dosage: 400 MILLIGRAM, EVERY 6 WEEKS
  2. KEYTRUDA [Suspect]
     Active Substance: PEMBROLIZUMAB
     Indication: Adenocarcinoma gastric
  3. KEYTRUDA [Suspect]
     Active Substance: PEMBROLIZUMAB
     Indication: Microsatellite instability cancer
  4. LEUCOVORIN [Concomitant]
     Active Substance: LEUCOVORIN
     Indication: Gastric cancer
     Dosage: UNK
  5. LEUCOVORIN [Concomitant]
     Active Substance: LEUCOVORIN
     Indication: Adenocarcinoma gastric
  6. LEUCOVORIN [Concomitant]
     Active Substance: LEUCOVORIN
     Indication: Microsatellite instability cancer
  7. FLUOROURACIL [Concomitant]
     Active Substance: FLUOROURACIL
     Indication: Gastric cancer
     Dosage: UNK
  8. FLUOROURACIL [Concomitant]
     Active Substance: FLUOROURACIL
     Indication: Adenocarcinoma gastric
  9. FLUOROURACIL [Concomitant]
     Active Substance: FLUOROURACIL
     Indication: Microsatellite instability cancer
  10. OXALIPLATIN [Concomitant]
     Active Substance: OXALIPLATIN
     Indication: Gastric cancer
     Dosage: UNK
  11. OXALIPLATIN [Concomitant]
     Active Substance: OXALIPLATIN
     Indication: Adenocarcinoma gastric
  12. OXALIPLATIN [Concomitant]
     Active Substance: OXALIPLATIN
     Indication: Microsatellite instability cancer

REACTIONS (2)
  - Neuropathy peripheral [Unknown]
  - Fatigue [Unknown]
